FAERS Safety Report 5006983-3 (Version None)
Quarter: 2006Q2

REPORT INFORMATION
  Report Type: 
  Country: None (occurrence: None)
  Receive Date: 20060517
  Receipt Date: 20060512
  Transmission Date: 20061013
  Serious: Yes (Other)
  Sender: FDA-Public Use
  Company Number: 2006-05-0746

PATIENT
  Age: 12 Year
  Sex: Male

DRUGS (1)
  1. AERIUS (DESLORATADINE) TABLETS [Suspect]
     Indication: HYPERSENSITIVITY
     Dosage: 1 TABLET QD ORAL
     Route: 048
     Dates: start: 20060505

REACTIONS (3)
  - FEELING ABNORMAL [None]
  - INJURY ASPHYXIATION [None]
  - WHEEZING [None]
